FAERS Safety Report 9719557 (Version 2)
Quarter: 2013Q4

REPORT INFORMATION
  Report Type: Spontaneous
  Country: US (occurrence: US)
  Receive Date: 20131128
  Receipt Date: 20131210
  Transmission Date: 20140711
  Serious: Yes (Hospitalization)
  Sender: FDA-Public Use
  Company Number: US-BIOGENIDEC-2013BI114433

PATIENT
  Age: 58 Year
  Sex: Male

DRUGS (1)
  1. TYSABRI [Suspect]
     Indication: MULTIPLE SCLEROSIS
     Route: 042
     Dates: start: 20130708

REACTIONS (6)
  - Muscular weakness [Unknown]
  - Asthenia [Unknown]
  - Mental disorder [Not Recovered/Not Resolved]
  - Adverse reaction [Recovered/Resolved]
  - Confusional state [Recovered/Resolved]
  - Urinary tract infection [Not Recovered/Not Resolved]
